FAERS Safety Report 9993519 (Version 1)
Quarter: 2014Q1

REPORT INFORMATION
  Report Type: Report from Study
  Country: US (occurrence: US)
  Receive Date: 20140310
  Receipt Date: 20140310
  Transmission Date: 20141002
  Serious: Yes (Hospitalization, Other)
  Sender: FDA-Public Use
  Company Number: US-ABBVIE-14P-163-1208250-00

PATIENT
  Age: 35 Year
  Sex: Female
  Weight: 96.7 kg

DRUGS (15)
  1. HUMIRA [Suspect]
     Indication: ARTHRITIS
     Dates: start: 201301, end: 201311
  2. PLAQUENIL [Concomitant]
     Indication: ARTHRITIS
  3. ELAVIL [Concomitant]
     Indication: PRODUCT USED FOR UNKNOWN INDICATION
  4. PREDNISONE [Concomitant]
     Indication: PRODUCT USED FOR UNKNOWN INDICATION
  5. XANAX [Concomitant]
     Indication: SLEEP DISORDER
  6. AMBIEN [Concomitant]
     Indication: SLEEP DISORDER
  7. MULTIVITAMIN [Concomitant]
     Indication: PRODUCT USED FOR UNKNOWN INDICATION
  8. VITAMIN D [Concomitant]
     Indication: PRODUCT USED FOR UNKNOWN INDICATION
  9. BIOTIN [Concomitant]
     Indication: PRODUCT USED FOR UNKNOWN INDICATION
  10. CALCIUM [Concomitant]
     Indication: PRODUCT USED FOR UNKNOWN INDICATION
  11. FLEXERIL [Concomitant]
     Indication: SLEEP DISORDER
  12. TRAMADOL [Concomitant]
     Indication: PAIN
  13. PROZAC [Concomitant]
     Indication: DEPRESSION
  14. ESTRACE [Concomitant]
     Indication: HORMONE REPLACEMENT THERAPY
  15. CENTRUM [Concomitant]
     Indication: VITAMIN SUPPLEMENTATION

REACTIONS (7)
  - Connective tissue disorder [Not Recovered/Not Resolved]
  - Systemic lupus erythematosus [Not Recovered/Not Resolved]
  - Obesity surgery [Recovered/Resolved]
  - Butterfly rash [Recovered/Resolved]
  - Drug ineffective [Not Recovered/Not Resolved]
  - Arthritis [Not Recovered/Not Resolved]
  - Off label use [Recovered/Resolved]
